FAERS Safety Report 15796384 (Version 6)
Quarter: 2019Q4

REPORT INFORMATION
  Report Type: Report from Study
  Country: JP (occurrence: JP)
  Receive Date: 20190108
  Receipt Date: 20191021
  Transmission Date: 20200122
  Serious: Yes (Death, Hospitalization, Other)
  Sender: FDA-Public Use
  Company Number: JP-AEGERION PHARMACEUTICAL, INC-AEGR002866

PATIENT
  Age: 43 Year
  Sex: Female

DRUGS (119)
  1. ZETIA [Concomitant]
     Active Substance: EZETIMIBE
     Indication: PRODUCT USED FOR UNKNOWN INDICATION
     Dosage: 10 MG, QD
     Route: 048
     Dates: end: 20160902
  2. BEZATOL SR [Concomitant]
     Active Substance: BEZAFIBRATE
     Dosage: 200 MG, QD
     Dates: start: 20150109, end: 20150924
  3. LANTUS [Concomitant]
     Active Substance: INSULIN GLARGINE
     Dosage: 5 IU, QD
     Dates: start: 20150924, end: 20150925
  4. LANTUS [Concomitant]
     Active Substance: INSULIN GLARGINE
     Dosage: 7 IU, QD
     Dates: start: 20151226, end: 20160121
  5. HUMALOG [Concomitant]
     Active Substance: INSULIN LISPRO
     Dosage: 2 IU, QD
     Dates: start: 20160730, end: 20161028
  6. HUMALOG [Concomitant]
     Active Substance: INSULIN LISPRO
     Dosage: 2 IU, QD
     Dates: start: 20180303, end: 20180303
  7. HUMALOG [Concomitant]
     Active Substance: INSULIN LISPRO
     Dosage: 2 IU, QD
     Dates: start: 20180305, end: 20180305
  8. HUMALOG [Concomitant]
     Active Substance: INSULIN LISPRO
     Dosage: 18 IU, QD
     Dates: start: 20181027, end: 20181027
  9. HUMALOG [Concomitant]
     Active Substance: INSULIN LISPRO
     Dosage: 20 IU, QD
     Dates: start: 20181028, end: 20181028
  10. PROGRAF [Concomitant]
     Active Substance: TACROLIMUS
     Indication: PROPHYLAXIS
     Dosage: UNK
     Dates: end: 20170623
  11. K-SUPPLY [Concomitant]
     Active Substance: POTASSIUM CHLORIDE
     Indication: PROPHYLAXIS
     Dosage: UNK
     Dates: start: 20150227, end: 20150303
  12. KINDAVATE [Concomitant]
     Active Substance: CLOBETASONE BUTYRATE
     Indication: PROPHYLAXIS
     Dosage: UNK
     Dates: start: 20150227, end: 20150312
  13. FEBURIC [Concomitant]
     Active Substance: FEBUXOSTAT
     Dosage: 5 MG, QD
     Dates: start: 20180731, end: 20180830
  14. VITAMEDIN                          /00274301/ [Concomitant]
     Active Substance: BENFOTIAMINE\CYANOCOBALAMIN\PYRIDOXINE HYDROCHLORIDE
     Indication: HEPATIC FAILURE
     Dosage: UNK
     Dates: start: 20181026, end: 20181109
  15. EPADEL-S [Concomitant]
     Active Substance: ICOSAPENT ETHYL
     Indication: PRODUCT USED FOR UNKNOWN INDICATION
     Dosage: 1800 MG, QD
     Route: 048
     Dates: end: 20190617
  16. BEZATOL SR [Concomitant]
     Active Substance: BEZAFIBRATE
     Indication: PRODUCT USED FOR UNKNOWN INDICATION
     Dosage: 200 MG, QD
     Route: 048
     Dates: end: 20141211
  17. BEZATOL SR [Concomitant]
     Active Substance: BEZAFIBRATE
     Dosage: 200 MG, QD
     Dates: start: 20151010, end: 20171117
  18. NOVORAPID [Concomitant]
     Active Substance: INSULIN ASPART
     Dosage: 6 IU, QD
     Dates: start: 20150519, end: 20150526
  19. LANTUS [Concomitant]
     Active Substance: INSULIN GLARGINE
     Indication: PRODUCT USED FOR UNKNOWN INDICATION
     Dosage: 2 IU, QD
     Dates: end: 20141205
  20. LANTUS [Concomitant]
     Active Substance: INSULIN GLARGINE
     Dosage: 3 IU, QD
     Dates: start: 20150227, end: 20150518
  21. HUMALOG [Concomitant]
     Active Substance: INSULIN LISPRO
     Indication: PRODUCT USED FOR UNKNOWN INDICATION
     Dosage: 12 IU, QD
     Dates: start: 20160128, end: 20160202
  22. HUMALOG [Concomitant]
     Active Substance: INSULIN LISPRO
     Dosage: 6 IU, QD
     Dates: start: 20181104, end: 20181104
  23. HUMALOG [Concomitant]
     Active Substance: INSULIN LISPRO
     Dosage: 3 IU, QD
     Dates: start: 20181105, end: 20181105
  24. PREDONINE [Concomitant]
     Active Substance: PREDNISOLONE
     Indication: PROPHYLAXIS
     Dosage: UNK
     Dates: end: 20190617
  25. FEBURIC [Concomitant]
     Active Substance: FEBUXOSTAT
     Dosage: 10 MG, QD
     Dates: start: 20180831, end: 20190617
  26. INSULIN GLARGINE BS [Concomitant]
     Active Substance: INSULIN GLARGINE
     Dosage: 4 IU, QD
     Dates: start: 20181030, end: 20181031
  27. LEVOFLOXACIN HEMIHYDRATE [Concomitant]
     Active Substance: LEVOFLOXACIN
     Indication: BRONCHITIS
     Dosage: UNK
     Dates: start: 20180112, end: 20180116
  28. FRESH FROZEN PLASMA [Concomitant]
     Active Substance: HUMAN PLASMA
     Indication: HEPATIC FAILURE
     Dosage: UNK
     Dates: start: 20181026, end: 20181026
  29. ZOSYN [Concomitant]
     Active Substance: PIPERACILLIN SODIUM\TAZOBACTAM SODIUM
     Indication: HEPATIC ENCEPHALOPATHY
     Dosage: UNK
     Dates: start: 20180302, end: 20180305
  30. VITAMEDIN                          /00274301/ [Concomitant]
     Active Substance: BENFOTIAMINE\CYANOCOBALAMIN\PYRIDOXINE HYDROCHLORIDE
     Indication: HEPATIC ENCEPHALOPATHY
     Dosage: UNK
     Dates: start: 20180303, end: 20180311
  31. LACTEC [Concomitant]
     Active Substance: CALCIUM CHLORIDE ANHYDROUS\POTASSIUM CHLORIDE\SODIUM CHLORIDE\SODIUM LACTATE
     Indication: HEPATIC FUNCTION ABNORMAL
     Dosage: UNK
     Dates: start: 20180726, end: 20180803
  32. ROPION [Concomitant]
     Active Substance: FLURBIPROFEN AXETIL
     Indication: OSTEONECROSIS
     Dosage: UNK
     Dates: start: 20190517, end: 20190517
  33. METRELEPTIN SHIONOGI [Suspect]
     Active Substance: METRELEPTIN
     Dosage: 0.06 MG/KG, QD
     Route: 058
     Dates: start: 20141216, end: 20150112
  34. METRELEPTIN SHIONOGI [Suspect]
     Active Substance: METRELEPTIN
     Dosage: 0.04 MG/KG, QD
     Route: 058
     Dates: start: 20150113, end: 20150305
  35. METRELEPTIN SHIONOGI [Suspect]
     Active Substance: METRELEPTIN
     Dosage: 0.08 MG/KG, QD
     Route: 058
     Dates: start: 20150311, end: 20190617
  36. NOVORAPID [Concomitant]
     Active Substance: INSULIN ASPART
     Indication: PRODUCT USED FOR UNKNOWN INDICATION
     Dosage: 10 IU, QD
     Dates: end: 20141128
  37. NOVORAPID [Concomitant]
     Active Substance: INSULIN ASPART
     Dosage: 6 IU, QD
     Dates: start: 20150310, end: 20150310
  38. LANTUS [Concomitant]
     Active Substance: INSULIN GLARGINE
     Dosage: 4 IU, QD
     Dates: start: 20160122, end: 20160122
  39. LANTUS [Concomitant]
     Active Substance: INSULIN GLARGINE
     Dosage: 8 IU, QD
     Dates: start: 20160325, end: 20160624
  40. HUMALOG [Concomitant]
     Active Substance: INSULIN LISPRO
     Dosage: 12 IU, QD
     Dates: start: 20160525, end: 20160624
  41. HUMALOG [Concomitant]
     Active Substance: INSULIN LISPRO
     Dosage: 11 IU, QD
     Dates: start: 20180730, end: 20180920
  42. HUMALOG [Concomitant]
     Active Substance: INSULIN LISPRO
     Dosage: 6 IU, QD
     Dates: start: 20181026, end: 20181026
  43. HUMALOG [Concomitant]
     Active Substance: INSULIN LISPRO
     Dosage: 26 IU, QD
     Dates: start: 20181101, end: 20181101
  44. HUMALOG [Concomitant]
     Active Substance: INSULIN LISPRO
     Dosage: 18 IU, QD
     Dates: start: 20181102, end: 20181102
  45. PARIET [Concomitant]
     Active Substance: RABEPRAZOLE SODIUM
     Indication: PROPHYLAXIS
     Dosage: UNK
     Dates: end: 20190617
  46. LUNESTA [Concomitant]
     Active Substance: ESZOPICLONE
     Indication: PROPHYLAXIS
     Dosage: UNK
     Dates: start: 20150312, end: 20150312
  47. CEFZON                             /00559701/ [Concomitant]
     Indication: INJURY
     Dosage: UNK
     Dates: start: 20180515, end: 20180521
  48. CEFZON                             /00559701/ [Concomitant]
     Indication: WRIST FRACTURE
     Dosage: UNK
     Dates: start: 20180627, end: 20180725
  49. FLAGYL [Concomitant]
     Active Substance: METRONIDAZOLE\METRONIDAZOLE HYDROCHLORIDE
     Indication: HEPATIC FUNCTION ABNORMAL
     Dosage: UNK
     Dates: start: 20180802, end: 20180812
  50. LOXOPROFEN [Concomitant]
     Active Substance: LOXOPROFEN
     Indication: OSTEONECROSIS
     Dosage: UNK
     Dates: start: 20190517, end: 20190518
  51. NOVORAPID [Concomitant]
     Active Substance: INSULIN ASPART
     Dosage: 12 IU, QD
     Dates: start: 20150311, end: 20150518
  52. LANTUS [Concomitant]
     Active Substance: INSULIN GLARGINE
     Dosage: 3 IU, QD
     Dates: start: 20160625, end: 20160902
  53. LANTUS [Concomitant]
     Active Substance: INSULIN GLARGINE
     Dosage: 2 IU, QD
     Dates: start: 20180413, end: 20180726
  54. AMINOLEBAN EN [Concomitant]
     Active Substance: UNSPECIFIED INGREDIENT
     Indication: PROPHYLAXIS
     Dosage: UNK
     Dates: start: 20150304, end: 20160202
  55. ASVERIN (TIPEPIDINE HIBENZATE) [Concomitant]
     Active Substance: TIPEPIDINE HIBENZATE
     Indication: PROPHYLAXIS
     Dosage: UNK
     Dates: start: 20150306, end: 20150312
  56. MS REISHIPPU [Concomitant]
     Active Substance: CAMPHOR\MENTHOL\METHYL SALICYLATE
     Indication: PROPHYLAXIS
     Dosage: UNK
     Dates: start: 20160126, end: 20160204
  57. GRACEPTOR [Concomitant]
     Active Substance: TACROLIMUS
     Indication: PROPHYLAXIS
     Dosage: UNK
     Dates: start: 20170624, end: 20190617
  58. HUMULIN R [Concomitant]
     Active Substance: INSULIN HUMAN
     Indication: PRODUCT USED FOR UNKNOWN INDICATION
     Dosage: 6 IU, QD
     Dates: start: 20180726, end: 20180726
  59. HUMULIN R [Concomitant]
     Active Substance: INSULIN HUMAN
     Dosage: 10 IU, QD
     Dates: start: 20180727, end: 20180727
  60. MEIACT [Concomitant]
     Active Substance: CEFDITOREN PIVOXIL
     Indication: BRONCHITIS
     Dosage: UNK
     Dates: start: 20180323, end: 20180325
  61. CEFMETAZOLE SODIUM [Concomitant]
     Active Substance: CEFMETAZOLE SODIUM
     Indication: HEPATIC FUNCTION ABNORMAL
     Dosage: UNK
     Dates: start: 20180730, end: 20180802
  62. METRELEPTIN SHIONOGI [Suspect]
     Active Substance: METRELEPTIN
     Indication: LIPOATROPHY
     Dosage: 0.04 MG/KG, QD
     Route: 058
     Dates: start: 20141128, end: 20141215
  63. NOVORAPID [Concomitant]
     Active Substance: INSULIN ASPART
     Dosage: 2 IU, QD
     Dates: start: 20150309, end: 20150309
  64. LANTUS [Concomitant]
     Active Substance: INSULIN GLARGINE
     Dosage: 12 IU, QD
     Dates: start: 20160124, end: 20160124
  65. LANTUS [Concomitant]
     Active Substance: INSULIN GLARGINE
     Dosage: 13 IU, QD
     Dates: start: 20160125, end: 20160127
  66. HUMALOG [Concomitant]
     Active Substance: INSULIN LISPRO
     Dosage: 16 IU, QD
     Dates: start: 20160203, end: 20160524
  67. HUMALOG [Concomitant]
     Active Substance: INSULIN LISPRO
     Dosage: 4 IU, QD
     Dates: start: 20180304, end: 20180304
  68. HUMALOG [Concomitant]
     Active Substance: INSULIN LISPRO
     Dosage: 28 IU, QD
     Dates: start: 20181031, end: 20181031
  69. LIPACREON [Concomitant]
     Active Substance: PANCRELIPASE
     Indication: PROPHYLAXIS
     Dosage: UNK
     Dates: start: 20150310, end: 20190617
  70. SENNOSIDE [Concomitant]
     Active Substance: SENNOSIDES
     Indication: PROPHYLAXIS
     Dosage: UNK
     Dates: start: 20160124, end: 20160204
  71. LECICARBON [Concomitant]
     Active Substance: SODIUM BICARBONATE\SODIUM PHOSPHATE, MONOBASIC
     Indication: PROPHYLAXIS
     Dosage: UNK
     Dates: start: 20160126, end: 20160204
  72. TRAZODONE HYDROCHLORIDE. [Concomitant]
     Active Substance: TRAZODONE HYDROCHLORIDE
     Indication: PROPHYLAXIS
     Dosage: UNK
     Dates: start: 20160126, end: 20160204
  73. BFLUID [Concomitant]
     Active Substance: AMINO ACIDS\DEXTROSE\ELECTROLYTES NOS\VITAMINS
     Dosage: UNK
     Dates: start: 20190111, end: 20190111
  74. ZETIA [Concomitant]
     Active Substance: EZETIMIBE
     Dosage: 10 MG, QD
     Dates: start: 20171117, end: 20190617
  75. URSO [Concomitant]
     Active Substance: URSODIOL
     Indication: PRODUCT USED FOR UNKNOWN INDICATION
     Dosage: 300 MG, QD
     Route: 048
     Dates: start: 20151211, end: 20151211
  76. NOVORAPID [Concomitant]
     Active Substance: INSULIN ASPART
     Dosage: 4 IU, QD
     Dates: start: 20150527, end: 20150924
  77. LANTUS [Concomitant]
     Active Substance: INSULIN GLARGINE
     Dosage: 2 IU, QD
     Dates: start: 20150519, end: 20150526
  78. LANTUS [Concomitant]
     Active Substance: INSULIN GLARGINE
     Dosage: 3 IU, QD
     Dates: start: 20150923, end: 20150924
  79. LANTUS [Concomitant]
     Active Substance: INSULIN GLARGINE
     Dosage: 5 IU, QD
     Dates: start: 20151024, end: 20151225
  80. LANTUS [Concomitant]
     Active Substance: INSULIN GLARGINE
     Dosage: 9 IU, QD
     Dates: start: 20160123, end: 20160123
  81. LANTUS [Concomitant]
     Active Substance: INSULIN GLARGINE
     Dosage: 2 IU, QD
     Dates: start: 20160903, end: 20161028
  82. HUMALOG [Concomitant]
     Active Substance: INSULIN LISPRO
     Dosage: 8 IU, QD
     Dates: start: 20160625, end: 20160729
  83. HUMALOG [Concomitant]
     Active Substance: INSULIN LISPRO
     Dosage: 8 IU, QD
     Dates: start: 20180728, end: 20180728
  84. ZOLPIDEM TARTRATE OD [Concomitant]
     Active Substance: ZOLPIDEM TARTRATE
     Indication: PROPHYLAXIS
     Dosage: UNK
     Dates: start: 20150312, end: 20150312
  85. INSULIN GLARGINE BS [Concomitant]
     Active Substance: INSULIN GLARGINE
     Indication: PRODUCT USED FOR UNKNOWN INDICATION
     Dosage: 3 IU, QD
     Dates: start: 20181027, end: 20181029
  86. INSULIN GLARGINE BS [Concomitant]
     Active Substance: INSULIN GLARGINE
     Dosage: 3 IU, QD
     Dates: start: 20181101, end: 20181101
  87. MEIACT [Concomitant]
     Active Substance: CEFDITOREN PIVOXIL
     Indication: PHARYNGITIS
     Dosage: UNK
     Dates: start: 20180413, end: 20180415
  88. CELECOX [Concomitant]
     Active Substance: CELECOXIB
     Indication: WRIST FRACTURE
     Dosage: UNK
     Dates: start: 20180627, end: 20180725
  89. PRIMPERAN [Concomitant]
     Active Substance: METOCLOPRAMIDE HYDROCHLORIDE
     Indication: HEPATIC FAILURE
     Dosage: UNK
     Dates: start: 20181026, end: 20181027
  90. METRELEPTIN SHIONOGI [Suspect]
     Active Substance: METRELEPTIN
     Dosage: 0.06 MG/KG, QD
     Route: 058
     Dates: start: 20150306, end: 20150310
  91. NOVORAPID [Concomitant]
     Active Substance: INSULIN ASPART
     Dosage: 6 IU, QD
     Dates: start: 20150925, end: 20150929
  92. NOVORAPID [Concomitant]
     Active Substance: INSULIN ASPART
     Dosage: 11 IU, QD
     Dates: start: 20151009, end: 20151225
  93. LANTUS [Concomitant]
     Active Substance: INSULIN GLARGINE
     Dosage: 10 IU, QD
     Dates: start: 20160128, end: 20160324
  94. HUMALOG [Concomitant]
     Active Substance: INSULIN LISPRO
     Dosage: 9 IU, QD
     Dates: start: 20180729, end: 20180729
  95. BONALON [Concomitant]
     Active Substance: ALENDRONATE SODIUM
     Indication: PROPHYLAXIS
     Dosage: 5 MG, UNK
     Dates: end: 20190617
  96. VITAMEDIN                          /00274301/ [Concomitant]
     Active Substance: BENFOTIAMINE\CYANOCOBALAMIN\PYRIDOXINE HYDROCHLORIDE
     Indication: HEPATIC FUNCTION ABNORMAL
     Dosage: UNK
     Dates: start: 20180726, end: 20180813
  97. IRRADIATED RED BLOOD CELLS-LEUKOCYTES REDUCED [Concomitant]
     Active Substance: HUMAN RED BLOOD CELL
     Indication: INJURY
     Dosage: UNK
     Dates: start: 20180511, end: 20180511
  98. BFLUID [Concomitant]
     Active Substance: AMINO ACIDS\DEXTROSE\ELECTROLYTES NOS\VITAMINS
     Dosage: UNK
     Dates: start: 20190201, end: 20190201
  99. FENTANYL CITRATE. [Concomitant]
     Active Substance: FENTANYL CITRATE
     Indication: OSTEONECROSIS
     Dosage: UNK
     Dates: start: 20190517, end: 20190517
  100. NOVORAPID [Concomitant]
     Active Substance: INSULIN ASPART
     Dosage: 4 IU, QD
     Dates: start: 20141129, end: 20141203
  101. NOVORAPID [Concomitant]
     Active Substance: INSULIN ASPART
     Dosage: 9 IU, QD
     Dates: start: 20150930, end: 20151008
  102. LANTUS [Concomitant]
     Active Substance: INSULIN GLARGINE
     Dosage: 7 IU, QD
     Dates: start: 20150925, end: 20151023
  103. HUMALOG [Concomitant]
     Active Substance: INSULIN LISPRO
     Dosage: 24 IU, QD
     Dates: start: 20181029, end: 20181029
  104. HUMALOG [Concomitant]
     Active Substance: INSULIN LISPRO
     Dosage: 26 IU, QD
     Dates: start: 20181030, end: 20181030
  105. HUMALOG [Concomitant]
     Active Substance: INSULIN LISPRO
     Dosage: 5 IU, QD
     Dates: start: 20181103, end: 20181103
  106. L-CARTIN [Concomitant]
     Active Substance: LEVOCARNITINE HYDROCHLORIDE
     Indication: PROPHYLAXIS
     Dosage: UNK
     Dates: end: 20150319
  107. MIYA-BM [Concomitant]
     Active Substance: CLOSTRIDIUM BUTYRICUM SPORES STRAIN M-55
     Indication: PROPHYLAXIS
     Dosage: UNK
     Dates: start: 20150304, end: 20190617
  108. CALONAL [Concomitant]
     Active Substance: ACETAMINOPHEN
     Indication: PROPHYLAXIS
     Dosage: UNK
     Dates: start: 20160129, end: 20160204
  109. FEBURIC [Concomitant]
     Active Substance: FEBUXOSTAT
     Indication: HYPERURICAEMIA
     Dosage: 10 MG, QD
     Route: 048
     Dates: start: 20171117, end: 20180730
  110. PL [Concomitant]
     Active Substance: ACETAMINOPHEN\CAFFEINE\PROMETHAZINE\SALICYLAMIDE
     Indication: BRONCHITIS
     Dosage: UNK
     Dates: start: 20180112, end: 20180116
  111. AMINOLEBAN [Concomitant]
     Active Substance: AMINO ACIDS, SOURCE UNSPECIFIED
     Indication: HEPATIC ENCEPHALOPATHY
     Dosage: UNK
     Dates: start: 20180302, end: 20180306
  112. LACTEC D                           /00895301/ [Concomitant]
     Indication: HEPATIC ENCEPHALOPATHY
     Dosage: UNK
     Dates: start: 20180302, end: 20180311
  113. CEFTRIAXONE                        /00672202/ [Concomitant]
     Active Substance: CEFTRIAXONE
     Indication: INJURY
     Dosage: UNK
     Dates: start: 20180511, end: 20180511
  114. VEEN D [Concomitant]
     Active Substance: CALCIUM CHLORIDE\DEXTROSE\POTASSIUM CHLORIDE\SODIUM ACETATE\SODIUM CHLORIDE
     Indication: HEPATIC FUNCTION ABNORMAL
     Dosage: UNK
     Dates: start: 20180725, end: 20180725
  115. BFLUID [Concomitant]
     Active Substance: AMINO ACIDS\DEXTROSE\ELECTROLYTES NOS\VITAMINS
     Indication: HEPATIC FUNCTION ABNORMAL
     Dosage: UNK
     Dates: start: 20180726, end: 20180813
  116. PHYSIO 140 [Concomitant]
     Active Substance: CALCIUM GLUCONATE\DEXTROSE\MAGNESIUM CHLORIDE\POTASSIUM CHLORIDE\SODIUM ACETATE\SODIUM CHLORIDE\TRISODIUM CITRATE DIHYDRATE
     Indication: HEPATIC FAILURE
     Dosage: UNK
     Dates: start: 20181026, end: 20181109
  117. SOLDEM 3A [Concomitant]
     Active Substance: CARBOHYDRATES\POTASSIUM CHLORIDE\SODIUM CHLORIDE\SODIUM LACTATE
     Indication: HEPATIC FAILURE
     Dosage: UNK
     Dates: start: 20181026, end: 20181101
  118. CEFAZOLIN SODIUM. [Concomitant]
     Active Substance: CEFAZOLIN SODIUM
     Indication: OSTEONECROSIS
     Dosage: UNK
     Dates: start: 20190517, end: 20190519
  119. SOLACET F [Concomitant]
     Active Substance: CALCIUM CHLORIDE\POTASSIUM CHLORIDE\SODIUM ACETATE\SODIUM CHLORIDE
     Indication: OSTEONECROSIS
     Dosage: UNK
     Dates: start: 20190517, end: 20190518

REACTIONS (19)
  - Hepatic function abnormal [Recovered/Resolved]
  - Hyperuricaemia [Recovering/Resolving]
  - Wrist fracture [Recovering/Resolving]
  - Fall [Recovering/Resolving]
  - Hepatic failure [Recovered/Resolved]
  - Osteonecrosis [Recovering/Resolving]
  - Fall [Recovering/Resolving]
  - Shock haemorrhagic [Fatal]
  - Bronchitis [Recovered/Resolved]
  - Injury [Recovered/Resolved]
  - Anaemia [Unknown]
  - Nasopharyngitis [Recovering/Resolving]
  - Pancytopenia [Not Recovered/Not Resolved]
  - Nasopharyngitis [Recovered/Resolved]
  - Hepatic encephalopathy [Recovered/Resolved]
  - Tibia fracture [Recovering/Resolving]
  - Pharyngitis [Recovered/Resolved]
  - Femoral neck fracture [Recovering/Resolving]
  - Bronchitis [Recovered/Resolved]

NARRATIVE: CASE EVENT DATE: 20160122
